FAERS Safety Report 4373607-8 (Version None)
Quarter: 2004Q1

REPORT INFORMATION
  Report Type: 
  Country: None (occurrence: None)
  Receive Date: 20040305
  Receipt Date: 20040204
  Transmission Date: 20041129
  Serious: Yes (Other)
  Sender: FDA-Public Use
  Company Number: 2004UW01922

PATIENT

DRUGS (1)
  1. CRESTOR [Suspect]
     Indication: DYSLIPIDAEMIA
     Dosage: 10 MG PO
     Route: 048
     Dates: start: 20040101

REACTIONS (2)
  - POLLAKIURIA [None]
  - PROTEINURIA [None]
